FAERS Safety Report 5906295-7 (Version None)
Quarter: 2008Q4

REPORT INFORMATION
  Report Type: 
  Country: None (occurrence: None)
  Receive Date: 20081002
  Receipt Date: 20080407
  Transmission Date: 20090506
  Serious: No
  Sender: FDA-Public Use
  Company Number: US-ABBOTT-08P-163-0445961-00

PATIENT
  Sex: Male

DRUGS (1)
  1. TRICOR [Suspect]
     Indication: HIGH DENSITY LIPOPROTEIN INCREASED
     Dates: start: 20050101

REACTIONS (1)
  - GLUCOSE TOLERANCE IMPAIRED [None]
